FAERS Safety Report 6735024-2 (Version None)
Quarter: 2010Q2

REPORT INFORMATION
  Report Type: 
  Country: None (occurrence: None)
  Receive Date: 20100521
  Receipt Date: 20100511
  Transmission Date: 20101027
  Serious: Yes (Disabling, Other)
  Sender: FDA-Public Use
  Company Number: US-WYE-H10626709

PATIENT
  Age: 22 Year
  Sex: Male
  Weight: 81.72 kg

DRUGS (4)
  1. PRISTIQ [Suspect]
     Indication: BIPOLAR I DISORDER
     Route: 048
     Dates: start: 20090301, end: 20090101
  2. LITHIUM [Concomitant]
     Indication: MOOD SWINGS
     Dates: start: 20080406
  3. GEODON [Concomitant]
     Indication: PSYCHOTIC DISORDER
     Dates: start: 20080604
  4. GEODON [Concomitant]
     Indication: MOOD SWINGS

REACTIONS (2)
  - MANIA [None]
  - MENTAL DISORDER [None]
